FAERS Safety Report 9707725 (Version 3)
Quarter: 2014Q1

REPORT INFORMATION
  Report Type: Spontaneous
  Country: IT (occurrence: None)
  Receive Date: 20131121
  Receipt Date: 20140131
  Transmission Date: 20141002
  Serious: Yes (Hospitalization)
  Sender: FDA-Public Use
  Company Number: AUR-APL-2013-09585

PATIENT
  Age: 86 Year
  Sex: Female

DRUGS (5)
  1. METFORMIN [Suspect]
     Indication: PRODUCT USED FOR UNKNOWN INDICATION
     Dosage: 3000 MG (3000 MG, 1 IN 1 D), ORAL
     Route: 048
  2. TORVAST [Suspect]
     Indication: PRODUCT USED FOR UNKNOWN INDICATION
     Dosage: 40 MG (40 MG, 1 IN 1 D) ,ORAL
     Route: 048
     Dates: start: 20131001, end: 20131008
  3. PLAVIX [Suspect]
     Indication: PRODUCT USED FOR UNKNOWN INDICATION
     Dosage: 75 MG (75 MG, 1 IN 1 D) ,ORAL
     Route: 048
  4. FOSFOMYCINA (FOSFOMYCIN) [Concomitant]
  5. LEVOPRAID (SULPIRIDE) [Concomitant]

REACTIONS (2)
  - Hepatic failure [None]
  - Intracardiac thrombus [None]
